FAERS Safety Report 7959539-4 (Version None)
Quarter: 2011Q4

REPORT INFORMATION
  Report Type: 
  Country: None (occurrence: None)
  Receive Date: 20111206
  Receipt Date: 20111125
  Transmission Date: 20120403
  Serious: Yes (Death)
  Sender: FDA-Public Use
  Company Number: JP-NAPPMUNDI-MAG-2011-0001843

PATIENT
  Age: 90 Year
  Sex: Male

DRUGS (1)
  1. BUPRENORPHINE [Suspect]
     Indication: SPINAL COMPRESSION FRACTURE
     Dosage: 5 MCG, Q1H
     Route: 062
     Dates: start: 20110902, end: 20111012

REACTIONS (2)
  - SOMNOLENCE [None]
  - PNEUMONIA [None]
